FAERS Safety Report 21779033 (Version 3)
Quarter: 2023Q1

REPORT INFORMATION
  Report Type: Spontaneous
  Country: ES (occurrence: ES)
  Receive Date: 20221226
  Receipt Date: 20230106
  Transmission Date: 20230417
  Serious: Yes (Hospitalization, Other)
  Sender: FDA-Public Use
  Company Number: ES-Aristo Pharma Iberia S.L.-2022009553

PATIENT
  Age: 63 Year
  Sex: Male

DRUGS (1)
  1. SILDENAFIL [Suspect]
     Active Substance: SILDENAFIL
     Indication: Erectile dysfunction
     Dosage: UNK,HE TOOK HALF OF THE SAME PILL. THE SAMPLE HAS
     Route: 048

REACTIONS (2)
  - Suspected counterfeit product [Recovered/Resolved]
  - Drug-induced liver injury [Recovered/Resolved]
